FAERS Safety Report 25579091 (Version 1)
Quarter: 2025Q3

REPORT INFORMATION
  Report Type: Report from Study
  Country: US (occurrence: US)
  Receive Date: 20250718
  Receipt Date: 20250718
  Transmission Date: 20251020
  Serious: Yes (Other)
  Sender: TEVA
  Company Number: US-TEVA-VS-3351673

PATIENT
  Age: 66 Year
  Sex: Female

DRUGS (1)
  1. AUSTEDO XR [Suspect]
     Active Substance: DEUTETRABENAZINE
     Indication: Tardive dyskinesia
     Dosage: 1X/DAY
     Route: 048
     Dates: start: 20250223, end: 20250626

REACTIONS (4)
  - Headache [Recovered/Resolved]
  - Aphonia [Recovered/Resolved]
  - Sinus disorder [Recovered/Resolved]
  - Ear disorder [Recovered/Resolved]

NARRATIVE: CASE EVENT DATE: 20250501
